FAERS Safety Report 6857577-6 (Version None)
Quarter: 2010Q3

REPORT INFORMATION
  Report Type: 
  Country: None (occurrence: None)
  Receive Date: 20100719
  Receipt Date: 20080128
  Transmission Date: 20110219
  Serious: No
  Sender: FDA-Public Use
  Company Number: US-PFIZER INC-2008008350

PATIENT
  Sex: Female
  Weight: 70.454 kg

DRUGS (6)
  1. CHANTIX [Suspect]
     Indication: SMOKING CESSATION THERAPY
     Dates: start: 20071214, end: 20080110
  2. INSULIN [Concomitant]
  3. CILOSTAZOL [Concomitant]
  4. ALTACE [Concomitant]
  5. ESTRADIOL [Concomitant]
  6. VITAMINS [Concomitant]

REACTIONS (3)
  - DIARRHOEA [None]
  - FLATULENCE [None]
  - NAUSEA [None]
